FAERS Safety Report 4961681-7 (Version None)
Quarter: 2006Q2

REPORT INFORMATION
  Report Type: 
  Country: None (occurrence: None)
  Receive Date: 20060404
  Receipt Date: 20060326
  Transmission Date: 20061013
  Serious: Yes (Other)
  Sender: FDA-Public Use
  Company Number: PHBS2006BR04806

PATIENT
  Sex: Male

DRUGS (2)
  1. RITALIN [Suspect]
     Route: 065
  2. PAROXETINE [Suspect]
     Indication: DEPRESSION
     Route: 065

REACTIONS (3)
  - DEPRESSION [None]
  - DRUG INTERACTION [None]
  - PANIC ATTACK [None]
